FAERS Safety Report 9769220 (Version 2)
Quarter: 2013Q4

REPORT INFORMATION
  Report Type: Spontaneous
  Country: PR (occurrence: PR)
  Receive Date: 20131218
  Receipt Date: 20131218
  Transmission Date: 20140711
  Serious: Yes (Other)
  Sender: FDA-Public Use
  Company Number: PR-BAYER-2013-010561

PATIENT
  Age: 55 Year
  Sex: Male

DRUGS (2)
  1. NEXAVAR [Suspect]
     Indication: HEPATIC CANCER
     Dosage: 400 MG, BID ( 800 2X400)
     Route: 048
     Dates: start: 201206
  2. NEXAVAR [Suspect]
     Indication: HEPATIC CANCER
     Dosage: 800 MG DAILY
     Route: 048
     Dates: start: 20120613

REACTIONS (7)
  - Diarrhoea [None]
  - Abdominal discomfort [None]
  - Dermatitis allergic [None]
  - Pruritus [None]
  - Urticaria [None]
  - Enzyme level increased [None]
  - Umbilical hernia repair [None]
